FAERS Safety Report 10650361 (Version 2)
Quarter: 2014Q4

REPORT INFORMATION
  Report Type: Report from Study
  Country: US (occurrence: US)
  Receive Date: 20141213
  Receipt Date: 20141213
  Transmission Date: 20150529
  Serious: Yes (Hospitalization, Other)
  Sender: FDA-Public Use
  Company Number: US-ABBVIE-14K-163-1285164-00

PATIENT
  Age: 59 Year
  Sex: Male
  Weight: 113.5 kg

DRUGS (5)
  1. MULTIVITAMIN [Concomitant]
     Active Substance: VITAMINS
     Indication: VITAMIN SUPPLEMENTATION
  2. COENZYME Q10 [Concomitant]
     Active Substance: UBIDECARENONE
     Indication: SUPPLEMENTATION THERAPY
  3. PRASCOLEND [Concomitant]
     Indication: PRODUCT USED FOR UNKNOWN INDICATION
  4. HUMIRA [Suspect]
     Active Substance: ADALIMUMAB
     Indication: CROHN^S DISEASE
     Route: 058
     Dates: start: 2008
  5. ASPIRIN. [Concomitant]
     Active Substance: ASPIRIN
     Indication: THROMBOSIS PROPHYLAXIS

REACTIONS (23)
  - Small intestinal obstruction [Unknown]
  - Duodenitis [Unknown]
  - Hiatus hernia [Unknown]
  - Blood albumin decreased [Unknown]
  - Appendicectomy [Unknown]
  - Blood testosterone decreased [Not Recovered/Not Resolved]
  - Enteritis [Not Recovered/Not Resolved]
  - Ileus [Unknown]
  - Duodenal ulcer [Unknown]
  - Ileal ulcer [Not Recovered/Not Resolved]
  - Gastrointestinal fistula [Not Recovered/Not Resolved]
  - Intestinal stenosis [Not Recovered/Not Resolved]
  - Ileal stenosis [Not Recovered/Not Resolved]
  - Haematocrit decreased [Unknown]
  - Localised intraabdominal fluid collection [Unknown]
  - Ascites [Unknown]
  - Intestinal dilatation [Unknown]
  - Stitch abscess [Unknown]
  - Haemoglobin decreased [Unknown]
  - Haemorrhoids [Unknown]
  - Drug ineffective [Not Recovered/Not Resolved]
  - Red cell distribution width increased [Unknown]
  - Rectal polyp [Unknown]

NARRATIVE: CASE EVENT DATE: 2008
